FAERS Safety Report 5480327-5 (Version None)
Quarter: 2007Q3

REPORT INFORMATION
  Report Type: 
  Country: None (occurrence: None)
  Receive Date: 20070914
  Receipt Date: 20060823
  Transmission Date: 20080115
  Serious: Yes (Hospitalization)
  Sender: FDA-Public Use
  Company Number: 06P-163-0341635-00

PATIENT
  Age: 65 Year
  Sex: Female
  Weight: 65.7716 kg

DRUGS (3)
  1. SYNTHROID [Suspect]
     Indication: HYPOTHYROIDISM
     Dosage: 50 MCG, 1 IN 1 D, PER ORAL;  25 MCG, 1 IN 1 D, PER ORAL
     Route: 048
     Dates: start: 20040501, end: 20060201
  2. SYNTHROID [Suspect]
     Indication: HYPOTHYROIDISM
     Dosage: 50 MCG, 1 IN 1 D, PER ORAL;  25 MCG, 1 IN 1 D, PER ORAL
     Route: 048
     Dates: start: 20060201
  3. FAMOTIDINE [Concomitant]

REACTIONS (1)
  - HYPERTENSION [None]
